FAERS Safety Report 13439128 (Version 1)
Quarter: 2017Q2

REPORT INFORMATION
  Report Type: Spontaneous
  Country: US (occurrence: US)
  Receive Date: 20170413
  Receipt Date: 20170413
  Transmission Date: 20170830
  Serious: No
  Sender: FDA-Public Use
  Company Number: US-ROCHE-1523114

PATIENT
  Sex: Female

DRUGS (38)
  1. PRAVACHOL [Concomitant]
     Active Substance: PRAVASTATIN SODIUM
     Dosage: 1 TABLET BY MOUTH DAILY
     Route: 048
     Dates: start: 20140604
  2. VFEND [Concomitant]
     Active Substance: VORICONAZOLE
     Dosage: 1 TABLET BY MOUTH TWICE DAILY
     Route: 048
     Dates: start: 20140402
  3. NOVOLOG [Concomitant]
     Active Substance: INSULIN ASPART
     Route: 058
     Dates: start: 20131016
  4. PROVENTIL [Concomitant]
     Active Substance: ALBUTEROL
     Indication: WHEEZING
     Dosage: 2.5 MG/3 ML (0.083 %), 120 ML, INHALED 3 ML AS INSTRUCTED EVERY 6 HOURS AS NEEDED (WHEEZING). FOR US
     Route: 050
     Dates: start: 20130827
  5. FLONASE [Concomitant]
     Active Substance: FLUTICASONE PROPIONATE
     Dosage: 1 SPRAY IN BOTH NOSTRILS DAILY
     Route: 050
     Dates: start: 20130526
  6. LANTUS SOLOSTAR [Concomitant]
     Active Substance: INSULIN GLARGINE
     Dosage: UNITS/ML (3 ML) SUBCUTANEOUS PEN, INJECTED 15 UNITS UNDER SKIN DAILY WITH BREAKFAST.
     Route: 058
     Dates: start: 20130424
  7. VITAMIN C [Concomitant]
     Active Substance: ASCORBIC ACID
     Dosage: 1 TABLET BY MOUTH TWICE DAILY AFTER LUNCH AND DINNER
     Route: 048
     Dates: start: 20130204
  8. XYLOCAINE [Concomitant]
     Active Substance: LIDOCAINE HYDROCHLORIDE
     Dosage: 20 MG/ML (2 %)
     Route: 065
     Dates: start: 20130429
  9. NEURONTIN [Concomitant]
     Active Substance: GABAPENTIN
     Dosage: 1 CAPSULE BY MOUTH THREE TMES DAILY
     Route: 048
     Dates: start: 20140608
  10. PRILOSEC [Concomitant]
     Active Substance: OMEPRAZOLE MAGNESIUM
     Dosage: 1 CAPSULE BY MOUTH DAILY BEFORE BREAKFAST. DO NOT CHEW, CRUSH OR OPEN CAPSULES
     Route: 048
     Dates: start: 20140604
  11. SYNTHROID [Concomitant]
     Active Substance: LEVOTHYROXINE SODIUM
     Dosage: 1 TABLET BY MOUTH DAILY ON EMPTY STOMACH
     Route: 048
     Dates: start: 20130204
  12. DELTASONE [Concomitant]
     Active Substance: PREDNISONE
     Dosage: 10 MG TWICE DAILY FOR ONE WEEK, THEN DECREASE TO 10 MG DAILY FOR ONE WEEK, THEN DECREASE TO 5 MG DAI
     Route: 065
     Dates: start: 20141120
  13. ZITHROMAX [Concomitant]
     Active Substance: AZITHROMYCIN DIHYDRATE
     Route: 048
     Dates: start: 20141114
  14. BACTRIM DS [Concomitant]
     Active Substance: SULFAMETHOXAZOLE\TRIMETHOPRIM
     Dosage: 400-80 MG TABLET, TAKE 1 TABLET BY MOUTH EVERY MONDAY, WEDNESDAY, FRIDAY
     Route: 048
     Dates: start: 20141030
  15. IMURAN [Concomitant]
     Active Substance: AZATHIOPRINE
     Dosage: 1.5 TABLETS BY MOUTH TWICE DAILY
     Route: 048
     Dates: start: 20140604
  16. XANAX [Concomitant]
     Active Substance: ALPRAZOLAM
     Indication: ANXIETY
     Route: 048
     Dates: start: 20140604
  17. ROCEPHIN [Suspect]
     Active Substance: CEFTRIAXONE SODIUM
     Indication: PRODUCT USED FOR UNKNOWN INDICATION
     Route: 065
  18. ZOFRAN [Concomitant]
     Active Substance: ONDANSETRON HYDROCHLORIDE
     Dosage: 1 TABLET BY MOUTH TWICE DAILY
     Route: 048
     Dates: start: 20140512
  19. MAG-OX [Concomitant]
     Active Substance: MAGNESIUM OXIDE
     Dosage: 1 TABLET BY MOUTH TWICE DAILY AFTER LUNCH AND DINNER
     Route: 048
     Dates: start: 20140110
  20. VENTOLIN HFA [Concomitant]
     Active Substance: ALBUTEROL SULFATE
     Indication: WHEEZING
     Dosage: INHALED 1 PUFF IN LUNGS EVERY 6 HOURS AS NEEDED FOR WHEEZING
     Route: 050
     Dates: start: 20131205
  21. LANCETS [Concomitant]
     Active Substance: DEVICE
     Dosage: 1 EACH FOUR TIMES DAILY WITH MEALS AND BEDTIME
     Route: 050
     Dates: start: 20130424
  22. FERROUS SULFATE. [Concomitant]
     Active Substance: FERROUS SULFATE
     Route: 048
     Dates: start: 20130204
  23. VALCYTE [Concomitant]
     Active Substance: VALGANCICLOVIR HYDROCHLORIDE
     Dosage: 1 TABLET BY MOUTH EVERY MONDAY, WEDNESDAY, FRIDAY. DO NOT CUT, CRUSH OR CHEW TABLETS
     Route: 048
     Dates: start: 20130508
  24. FOLIC ACID. [Concomitant]
     Active Substance: FOLIC ACID
     Route: 048
     Dates: start: 20140102
  25. AMBIEN [Concomitant]
     Active Substance: ZOLPIDEM TARTRATE
     Indication: INSOMNIA
     Dosage: 0.5 TABLET BY MOUTH AT BEDTIME AS NEEDED FOR INSOMNIA, IMMEDIATELY BEFORE BEDTIME
     Route: 048
     Dates: start: 20130424
  26. COLACE [Concomitant]
     Active Substance: DOCUSATE SODIUM
     Indication: CONSTIPATION
     Dosage: 1 CAPSULE BY MOUTH TWICE DAILY AS NEEDED FOR CONSTIPATION
     Route: 048
     Dates: start: 20130204
  27. LASIX [Concomitant]
     Active Substance: FUROSEMIDE
     Indication: SWELLING
     Dosage: TAKE 1 TABLET BY MOUTH DAILY AS NEEDED (SWELLING)
     Route: 048
  28. PENLAC [Concomitant]
     Active Substance: CICLOPIROX
     Dosage: APPLED TO AFFECTED AREA AT BED TIME. APPLY EVENLY OVER NAIL AND SURROUNDING SKIN AT BED TIME (ALLOW
     Route: 061
     Dates: start: 20140926
  29. BRONCHO SALINE [Concomitant]
     Indication: DYSPNOEA
     Dosage: INHALED 3 ML AS INSTRUCTED EVERY 4 HOURS AS NEEDED FOR OTHRT (SHORTNESS OF BREATH). FOR USE IN NEBUL
     Route: 050
     Dates: start: 20130507
  30. ASPIRIN. [Concomitant]
     Active Substance: ASPIRIN
     Dosage: 1 TABLET BY MOUT DAILY
     Route: 048
     Dates: start: 20130424
  31. CITRACAL + D [Concomitant]
     Active Substance: CALCIUM CITRATE\VITAMIN D
     Dosage: 1 TABLET BY MOUTH TWICE DAILY AFTER LUNCH AND DINNER
     Route: 048
     Dates: start: 20130204
  32. TYLENOL WITH CODEINE [Concomitant]
     Active Substance: ACETAMINOPHEN\CODEINE PHOSPHATE
     Indication: PAIN
     Dosage: 300-30 MG ORAL TABLET, TAKE 1 TABLET BY MONTH EVERY 6 MONTHS AS NEEDED FOR PAIN. DO NOT EXCEED 3,000
     Route: 048
     Dates: start: 20141030
  33. ULTRAM [Concomitant]
     Active Substance: TRAMADOL HYDROCHLORIDE
     Indication: PAIN
     Dosage: 1 TABLET BY MONTH EVERY 8 HOURS AS NEEDED FOR PAIN
     Route: 048
     Dates: start: 20141030
  34. LOVAZA [Concomitant]
     Active Substance: OMEGA-3-ACID ETHYL ESTERS
     Dosage: 1 CAPSULE BY MOUTH TWICE DAILY
     Route: 048
     Dates: end: 20141030
  35. BRONCHO SALINE [Concomitant]
     Indication: WHEEZING
     Dosage: INHALE 3 ML AS INSTRUCTED AS NEEDED FOR OTHER (WHEEZING). FOR USE IN NEBULIZER
     Route: 050
     Dates: start: 20140515
  36. NORVASC [Concomitant]
     Active Substance: AMLODIPINE BESYLATE
     Dosage: 1 TABLET BY MOUTH DAILY
     Route: 048
     Dates: start: 20140923
  37. TACROLIMUS. [Concomitant]
     Active Substance: TACROLIMUS
     Dosage: 1 CAPSULE AM AND 1 CAPSULE PM
     Route: 048
     Dates: start: 20140915
  38. LOPRESSOR [Concomitant]
     Active Substance: METOPROLOL TARTRATE
     Dosage: 1 TABLET BY MOUTH THREE TIME DAILY
     Route: 048
     Dates: start: 20140604

REACTIONS (1)
  - Drug hypersensitivity [Unknown]
